FAERS Safety Report 10955185 (Version 1)
Quarter: 2015Q1

REPORT INFORMATION
  Report Type: Report from Study
  Country: CO (occurrence: CO)
  Receive Date: 20150326
  Receipt Date: 20150326
  Transmission Date: 20150721
  Serious: Yes (Other)
  Sender: FDA-Public Use
  Company Number: CO-ROCHE-1556217

PATIENT
  Age: 16 Year
  Sex: Female
  Weight: 72 kg

DRUGS (1)
  1. XOLAIR [Suspect]
     Active Substance: OMALIZUMAB
     Indication: CHRONIC SPONTANEOUS URTICARIA
     Route: 058
     Dates: start: 20150203

REACTIONS (1)
  - Chikungunya virus infection [Unknown]

NARRATIVE: CASE EVENT DATE: 20150302
